FAERS Safety Report 12806223 (Version 1)
Quarter: 2016Q4

REPORT INFORMATION
  Report Type: Spontaneous
  Country: JP (occurrence: JP)
  Receive Date: 20161004
  Receipt Date: 20161004
  Transmission Date: 20170207
  Serious: Yes (Death, Other)
  Sender: FDA-Public Use
  Company Number: PHJP2016JP028025

PATIENT
  Sex: Female

DRUGS (1)
  1. ZYKADIA [Suspect]
     Active Substance: CERITINIB
     Indication: LUNG NEOPLASM MALIGNANT
     Dosage: 150 MG, QD
     Route: 048
     Dates: start: 20160815

REACTIONS (4)
  - Malignant neoplasm progression [Fatal]
  - Lung neoplasm malignant [Fatal]
  - Cerebral infarction [Fatal]
  - Thrombosis [Unknown]

NARRATIVE: CASE EVENT DATE: 201608
